FAERS Safety Report 15931936 (Version 2)
Quarter: 2019Q3

REPORT INFORMATION
  Report Type: Report from Study
  Country: None (occurrence: DE)
  Receive Date: 20190207
  Receipt Date: 20190802
  Transmission Date: 20191004
  Serious: Yes (Death, Hospitalization)
  Sender: FDA-Public Use
  Company Number: DE-ABBVIE-19K-062-2655634-00

PATIENT
  Sex: Female

DRUGS (6)
  1. ORENCIA [Concomitant]
     Active Substance: ABATACEPT
     Indication: PRODUCT USED FOR UNKNOWN INDICATION
     Dates: start: 201604, end: 201604
  2. AZATHIOPRINE. [Concomitant]
     Active Substance: AZATHIOPRINE
     Dates: end: 201111
  3. MTX [Concomitant]
     Active Substance: METHOTREXATE SODIUM
     Indication: PRODUCT USED FOR UNKNOWN INDICATION
     Dates: start: 20160314, end: 20170125
  4. HUMIRA [Suspect]
     Active Substance: ADALIMUMAB
     Indication: RHEUMATOID ARTHRITIS
     Route: 058
     Dates: start: 201206, end: 201302
  5. AZATHIOPRINE. [Concomitant]
     Active Substance: AZATHIOPRINE
     Indication: PRODUCT USED FOR UNKNOWN INDICATION
     Dates: start: 201112, end: 2016
  6. ORENCIA [Concomitant]
     Active Substance: ABATACEPT
     Dates: start: 201606, end: 201803

REACTIONS (2)
  - Aortic aneurysm [Unknown]
  - Death [Fatal]

NARRATIVE: CASE EVENT DATE: 20180710
